FAERS Safety Report 12109892 (Version 1)
Quarter: 2016Q1

REPORT INFORMATION
  Report Type: Spontaneous
  Country: US (occurrence: None)
  Receive Date: 20160222
  Receipt Date: 20160222
  Transmission Date: 20160526
  Serious: Yes (Other)
  Sender: FDA-Public Use
  Company Number: None

PATIENT
  Age: 40 Year
  Sex: Female

DRUGS (1)
  1. AMIODARONE 200MG [Suspect]
     Active Substance: AMIODARONE
     Indication: ATRIAL FIBRILLATION
     Dosage: 10/20/15 FIRST INITIAL DOSE NEXT DOSE 12/07/15 LAST DOSE 12/08/15
     Route: 048
     Dates: start: 20151020

REACTIONS (6)
  - Haemoglobin decreased [None]
  - Dizziness [None]
  - Hypotension [None]
  - Atrial fibrillation [None]
  - Aspartate aminotransferase increased [None]
  - Alanine aminotransferase increased [None]

NARRATIVE: CASE EVENT DATE: 20151209
